FAERS Safety Report 19328383 (Version 1)
Quarter: 2021Q2

REPORT INFORMATION
  Report Type: Spontaneous
  Country: US (occurrence: US)
  Receive Date: 20210528
  Receipt Date: 20210528
  Transmission Date: 20210717
  Serious: Yes (Other)
  Sender: FDA-Public Use
  Company Number: US-ELI_LILLY_AND_COMPANY-US202105007630

PATIENT
  Age: 72 Year
  Sex: Male

DRUGS (1)
  1. TRULICITY [Suspect]
     Active Substance: DULAGLUTIDE
     Indication: TYPE 2 DIABETES MELLITUS
     Dosage: 1.5 MG, UNKNOWN
     Route: 065
     Dates: start: 2019

REACTIONS (5)
  - Cerebrovascular accident [Unknown]
  - Amnesia [Unknown]
  - Mobility decreased [Unknown]
  - Fall [Unknown]
  - Speech disorder [Recovering/Resolving]

NARRATIVE: CASE EVENT DATE: 20210515
